FAERS Safety Report 8143753-1 (Version None)
Quarter: 2012Q1

REPORT INFORMATION
  Report Type: 
  Country: None (occurrence: None)
  Receive Date: 20120103
  Receipt Date: 20111006
  Transmission Date: 20120608
  Serious: No
  Sender: FDA-Public Use
  Company Number: AE-2011-002107

PATIENT
  Age: 57 Year
  Sex: Male
  Weight: 104.3273 kg

DRUGS (9)
  1. INCIVEK [Suspect]
     Dosage: 2250 MG (750 MG, 1 IN 8 HR), ORAL
     Route: 048
     Dates: start: 20111003
  2. RIBAVIRIN [Concomitant]
  3. LEVOTHYROXINE SODIUM [Concomitant]
  4. PEGASYS [Concomitant]
  5. PRAVASTATIN [Concomitant]
  6. LISINOPRIL [Concomitant]
  7. SERTRALINE HYDROCHLORIDE [Concomitant]
  8. AMLODIPINE [Concomitant]
  9. TAMSULOSIN HCL [Concomitant]

REACTIONS (1)
  - ANORECTAL DISCOMFORT [None]
